FAERS Safety Report 23219825 (Version 1)
Quarter: 2023Q4

REPORT INFORMATION
  Report Type: Spontaneous
  Country: US (occurrence: US)
  Receive Date: 20231122
  Receipt Date: 20231122
  Transmission Date: 20240110
  Serious: No
  Sender: FDA-Public Use
  Company Number: US-AVADEL CNS PHARMACEUTICALS, LLC-2023AVA00122

PATIENT
  Age: 25 Year
  Sex: Male

DRUGS (1)
  1. LUMRYZ [Suspect]
     Active Substance: SODIUM OXYBATE
     Dosage: 6 G
     Dates: start: 202308, end: 2023

REACTIONS (2)
  - Dyspnoea [Unknown]
  - Panic reaction [Unknown]

NARRATIVE: CASE EVENT DATE: 20230801
